FAERS Safety Report 9418640 (Version 1)
Quarter: 2013Q3

REPORT INFORMATION
  Report Type: Spontaneous
  Country: US (occurrence: US)
  Receive Date: 20130725
  Receipt Date: 20130725
  Transmission Date: 20140515
  Serious: Yes (Other)
  Sender: FDA-Public Use
  Company Number: US-BRISTOL-MYERS SQUIBB COMPANY-19109941

PATIENT
  Age: 47 Year
  Sex: Male
  Weight: 83.9 kg

DRUGS (8)
  1. SPRYCEL (CML) TABS 100 MG [Suspect]
     Indication: CHRONIC MYELOID LEUKAEMIA
     Dosage: LAST DSOSE ON 15-JUL-2013
  2. MORPHINE [Concomitant]
     Dosage: IR
  3. GABAPENTIN [Concomitant]
  4. ZOFRAN [Concomitant]
  5. NITRO [Concomitant]
  6. BENADRYL [Concomitant]
     Dosage: TABS
  7. SIMVASTATIN [Concomitant]
  8. DIPHENHYDRAMINE HCL [Concomitant]

REACTIONS (15)
  - Pericarditis [Unknown]
  - Hepatomegaly [Unknown]
  - Bone pain [Unknown]
  - Gallbladder enlargement [Unknown]
  - Insomnia [Unknown]
  - Night sweats [Unknown]
  - Abdominal pain [Unknown]
  - Headache [Unknown]
  - Nausea [Unknown]
  - Chest pain [Unknown]
  - Myalgia [Unknown]
  - Visual acuity reduced [Unknown]
  - Hypoacusis [Unknown]
  - Arthralgia [Unknown]
  - Gait disturbance [Unknown]
